FAERS Safety Report 13349859 (Version 1)
Quarter: 2017Q1

REPORT INFORMATION
  Report Type: Spontaneous
  Country: US (occurrence: US)
  Receive Date: 20170318
  Receipt Date: 20170318
  Transmission Date: 20170429
  Serious: Yes (Other)
  Sender: FDA-Public Use
  Company Number: None

PATIENT
  Age: 47 Year
  Sex: Female
  Weight: 81 kg

DRUGS (6)
  1. ZYRTEC [Concomitant]
     Active Substance: CETIRIZINE HYDROCHLORIDE
  2. CYMBALTA [Concomitant]
     Active Substance: DULOXETINE HYDROCHLORIDE
  3. TRAMADOL. [Concomitant]
     Active Substance: TRAMADOL
  4. LUNESTA [Concomitant]
     Active Substance: ESZOPICLONE
  5. BREO ELLIPTA [Suspect]
     Active Substance: FLUTICASONE FUROATE\VILANTEROL TRIFENATATE
     Indication: BRONCHITIS
     Dosage: OTHER STRENGTH:MCG INH;QUANTITY:30 INHALATION(S);?
     Route: 055
     Dates: start: 20170301, end: 20170308
  6. MOBIC [Concomitant]
     Active Substance: MELOXICAM

REACTIONS (4)
  - Feeding disorder [None]
  - Impaired work ability [None]
  - Oral candidiasis [None]
  - Pneumonia [None]

NARRATIVE: CASE EVENT DATE: 20170309
